FAERS Safety Report 8339020-3 (Version None)
Quarter: 2012Q2

REPORT INFORMATION
  Report Type: 
  Country: None (occurrence: None)
  Receive Date: 20120507
  Receipt Date: 20120425
  Transmission Date: 20120825
  Serious: Yes (Death)
  Sender: FDA-Public Use
  Company Number: BE-BRISTOL-MYERS SQUIBB COMPANY-16559957

PATIENT
  Age: 38 Year
  Sex: Male

DRUGS (5)
  1. ETHAMBUTOL HYDROCHLORIDE [Concomitant]
     Dates: start: 20090403
  2. PYRAZINAMIDE [Concomitant]
     Dates: start: 20090403
  3. ISONIAZID [Interacting]
     Indication: HIV INFECTION
     Route: 065
     Dates: start: 20090403, end: 20090508
  4. RIFAMPIN [Concomitant]
     Dates: start: 20090403
  5. EFAVIRENZ [Suspect]
     Indication: HIV INFECTION
     Dosage: AT NIGHT
     Route: 048
     Dates: start: 20090201, end: 20090508

REACTIONS (2)
  - DRUG INTERACTION [None]
  - COMA [None]
